FAERS Safety Report 17199562 (Version 1)
Quarter: 2019Q4

REPORT INFORMATION
  Report Type: Report from Study
  Country: None (occurrence: US)
  Receive Date: 20191226
  Receipt Date: 20191226
  Transmission Date: 20200122
  Serious: Yes (Other)
  Sender: FDA-Public Use
  Company Number: US-ABBVIE-19K-163-2971221-00

PATIENT
  Age: 78 Year
  Sex: Female

DRUGS (1)
  1. HUMIRA [Suspect]
     Active Substance: ADALIMUMAB
     Indication: CROHN^S DISEASE
     Route: 058

REACTIONS (8)
  - Blood pressure fluctuation [Unknown]
  - Procedural complication [Unknown]
  - Heart rate irregular [Unknown]
  - Melanocytic naevus [Unknown]
  - Depression [Unknown]
  - Dizziness [Recovering/Resolving]
  - Atrial fibrillation [Recovered/Resolved]
  - Foot operation [Unknown]

NARRATIVE: CASE EVENT DATE: 201908
